FAERS Safety Report 16797948 (Version 2)
Quarter: 2020Q1

REPORT INFORMATION
  Report Type: Spontaneous
  Country: US (occurrence: US)
  Receive Date: 20190912
  Receipt Date: 20200313
  Transmission Date: 20200409
  Serious: No
  Sender: FDA-Public Use
  Company Number: US-TEVA-2019-US-1105918

PATIENT
  Sex: Male

DRUGS (25)
  1. MUCINEX SINUS-MAX [Concomitant]
     Indication: SINUSITIS
     Dosage: 2400 ML DAILY; MORN/NIGHT
     Route: 065
  2. LIPITOR [Concomitant]
     Active Substance: ATORVASTATIN CALCIUM
     Indication: BLOOD CHOLESTEROL
     Dosage: NIGHT
  3. FUROSEMIDE. [Concomitant]
     Active Substance: FUROSEMIDE
     Indication: OEDEMA
     Dosage: AS NEEDED
  4. LIDOCAINE. [Suspect]
     Active Substance: LIDOCAINE
     Indication: MUSCULOSKELETAL PAIN
     Dosage: 1 PATCH/DAY
     Route: 062
     Dates: start: 20190829, end: 20190901
  5. LISINOPRIL (PRINIVIL) [Concomitant]
     Dosage: STARTED TAKING 1/2 PILL (10 MG.)?MORNING
  6. EFFEXOR XR [Concomitant]
     Active Substance: VENLAFAXINE HYDROCHLORIDE
     Dosage: MORN
  7. NUVIGIL [Concomitant]
     Active Substance: ARMODAFINIL
     Indication: SLEEP APNOEA SYNDROME
     Dosage: 1 PILL PER DAY, MORNING
  8. PROTONIX [Concomitant]
     Active Substance: PANTOPRAZOLE SODIUM
     Indication: GASTROOESOPHAGEAL REFLUX DISEASE
     Dosage: MORN
  9. GABAPENTIN. [Concomitant]
     Active Substance: GABAPENTIN
     Indication: MUSCULOSKELETAL PAIN
     Dosage: (CUT DOWN TO 1 PER DAY 2/8/20. TAKE 1 FOR 2 WK{. THEN Y, PILL FOR 2 WK.?MORN
  10. TERAZOSIN [Concomitant]
     Active Substance: TERAZOSIN HYDROCHLORIDE
     Indication: BLOOD PRESSURE MEASUREMENT
     Dosage: NIGHT
  11. LEVALBUTEROL TARTRATE HFA [Concomitant]
     Indication: DYSPNOEA
     Dosage: 45 MCG/ACTUATION?EMERGENCY?AS NEEDED
  12. IRON / FERROUS SULFATE [Concomitant]
     Indication: ANAEMIA
     Dosage: 325(65 MG)?MORN/NIGHT
  13. NITROGLYCERIN (NITROSTAT) [Concomitant]
     Indication: CHEST PAIN
     Dosage: 1 TABLET UNDER TONGUE EVERY 5 MIN. FOR 3 DOSES?AS NEEDED
  14. AMLODIPINE [Concomitant]
     Active Substance: AMLODIPINE BESYLATE
     Indication: BLOOD PRESSURE MEASUREMENT
     Dosage: MORN
  15. SINGULAIR [Concomitant]
     Active Substance: MONTELUKAST SODIUM
     Indication: ASTHMA
     Dosage: 10 MILLIGRAM DAILY; NIGHT
  16. TRAZODONE [Concomitant]
     Active Substance: TRAZODONE HYDROCHLORIDE
     Indication: SLEEP DISORDER
     Dosage: 1/2, PILL (25)?NIGHT
  17. VITAMIN D3 [Concomitant]
     Active Substance: CHOLECALCIFEROL
     Indication: VITAMIN D DEFICIENCY
     Dosage: MORN
  18. BUDESONIDE INHALATION SUSPENSION [Concomitant]
     Active Substance: BUDESONIDE
     Indication: DYSPNOEA
     Dosage: 0.5 MG(NPH) /2 ML 30^S?1 VIAL IN NEBULIZER / RIN5EMOUTH
  19. EFFEXOR XR [Concomitant]
     Active Substance: VENLAFAXINE HYDROCHLORIDE
     Indication: ANXIETY
     Dosage: 150 MILLIGRAM DAILY; TOTAL OF 225 ;MORN?TAKE 1 150MG?TAKE 1 75 MG......
  20. ZERTEC (CETIRIZINE) [Concomitant]
     Indication: HYPERSENSITIVITY
     Dosage: NIGHT
  21. LEVALBUTEROL HCI [Concomitant]
     Active Substance: LEVALBUTEROL HYDROCHLORIDE
     Indication: DYSPNOEA
     Dosage: 0.63 MG/3ML; 1 VIAL IN NEBULIZER
  22. LIDOCAINE. [Suspect]
     Active Substance: LIDOCAINE
     Dosage: 1 PATCH/DAY
     Route: 062
     Dates: start: 20190925
  23. CARAFATE [Concomitant]
     Active Substance: SUCRALFATE
     Indication: ABDOMINAL PAIN UPPER
     Dosage: M-N-NIGHT
  24. CEPHALEXIN. [Concomitant]
     Active Substance: CEPHALEXIN
     Indication: URINARY TRACT INFECTION
     Dosage: BEDTIME
  25. XARELTO [Concomitant]
     Active Substance: RIVAROXABAN
     Indication: ANTIPLATELET THERAPY
     Dosage: WITH EVENING MEAL

REACTIONS (2)
  - Product use in unapproved indication [Unknown]
  - Application site vesicles [Unknown]

NARRATIVE: CASE EVENT DATE: 2019
